FAERS Safety Report 22604028 (Version 7)
Quarter: 2023Q4

REPORT INFORMATION
  Report Type: Spontaneous
  Country: JP (occurrence: JP)
  Receive Date: 20230615
  Receipt Date: 20231227
  Transmission Date: 20240110
  Serious: Yes (Hospitalization, Other)
  Sender: FDA-Public Use
  Company Number: JP-ASTELLAS-2023JP003076

PATIENT
  Age: 8 Decade
  Sex: Male

DRUGS (8)
  1. XOSPATA [Suspect]
     Active Substance: GILTERITINIB
     Indication: Acute myeloid leukaemia recurrent
     Route: 048
     Dates: start: 20230209
  2. XOSPATA [Suspect]
     Active Substance: GILTERITINIB
     Indication: Acute myeloid leukaemia refractory
     Dosage: 120 MG, ONCE DAILY, REFER TO NARRATIVE
     Route: 048
  3. XOSPATA [Suspect]
     Active Substance: GILTERITINIB
     Dosage: UNK UNK, UNKNOWN FREQ.
     Route: 048
  4. XOSPATA [Suspect]
     Active Substance: GILTERITINIB
     Dosage: UNK UNK, UNKNOWN FREQ.
     Route: 048
     Dates: start: 20230601, end: 202309
  5. XOSPATA [Suspect]
     Active Substance: GILTERITINIB
     Route: 048
     Dates: start: 20230925, end: 202311
  6. XOSPATA [Suspect]
     Active Substance: GILTERITINIB
     Route: 048
     Dates: start: 20231114
  7. URSODIOL [Concomitant]
     Active Substance: URSODIOL
     Indication: Hepatic function abnormal
     Route: 065
  8. POSACONAZOLE [Concomitant]
     Active Substance: POSACONAZOLE
     Indication: Product used for unknown indication
     Dosage: UNK UNK, UNKNOWN FREQ.
     Route: 065

REACTIONS (3)
  - Haematemesis [Recovered/Resolved]
  - Melaena [Recovered/Resolved]
  - Aspartate aminotransferase increased [Recovered/Resolved]

NARRATIVE: CASE EVENT DATE: 20230301
